FAERS Safety Report 16727622 (Version 3)
Quarter: 2019Q3

REPORT INFORMATION
  Report Type: Spontaneous
  Country: US (occurrence: US)
  Receive Date: 20190822
  Receipt Date: 20190923
  Transmission Date: 20191005
  Serious: Yes (Other)
  Sender: FDA-Public Use
  Company Number: US-009507513-1908USA006803

PATIENT
  Age: 52 Year
  Sex: Female
  Weight: 72.56 kg

DRUGS (8)
  1. VENTOLIN [Concomitant]
     Active Substance: ALBUTEROL SULFATE
     Dosage: UNK
  2. ADVAIR HFA [Concomitant]
     Active Substance: FLUTICASONE PROPIONATE\SALMETEROL XINAFOATE
  3. ANORO ELLIPTA [Suspect]
     Active Substance: UMECLIDINIUM BROMIDE\VILANTEROL TRIFENATATE
     Dosage: UNK
     Dates: start: 20190808, end: 201908
  4. ASMANEX [Suspect]
     Active Substance: MOMETASONE FUROATE
     Indication: PNEUMONITIS
     Dosage: 220 MICROGRAM, QD
     Dates: start: 20190726
  5. ASMANEX [Suspect]
     Active Substance: MOMETASONE FUROATE
     Indication: COUGH
  6. ASMANEX [Suspect]
     Active Substance: MOMETASONE FUROATE
     Indication: OBSTRUCTIVE AIRWAYS DISORDER
     Dosage: UNK, ONCE DAILY
     Route: 055
     Dates: start: 20190813
  7. ASMANEX [Suspect]
     Active Substance: MOMETASONE FUROATE
     Indication: ASTHMA
     Dosage: UNK UNK, QD
     Route: 055
     Dates: start: 2014
  8. ROBITUSSIN (GUAIFENESIN) [Concomitant]
     Active Substance: GUAIFENESIN
     Dosage: UNK

REACTIONS (15)
  - Dysgeusia [Unknown]
  - Productive cough [Not Recovered/Not Resolved]
  - Retching [Not Recovered/Not Resolved]
  - Product quality issue [Recovered/Resolved]
  - Inappropriate schedule of product administration [Unknown]
  - Lower respiratory tract infection [Not Recovered/Not Resolved]
  - Feeling jittery [Not Recovered/Not Resolved]
  - Cough [Not Recovered/Not Resolved]
  - Product quality issue [Not Recovered/Not Resolved]
  - Poor quality device used [Unknown]
  - Respiratory tract irritation [Not Recovered/Not Resolved]
  - Sinusitis [Not Recovered/Not Resolved]
  - Oropharyngeal pain [Not Recovered/Not Resolved]
  - Drug ineffective [Not Recovered/Not Resolved]
  - Product use in unapproved indication [Unknown]

NARRATIVE: CASE EVENT DATE: 2014
